FAERS Safety Report 16019135 (Version 1)
Quarter: 2019Q1

REPORT INFORMATION
  Report Type: Report from Study
  Country: GB (occurrence: GB)
  Receive Date: 20190228
  Receipt Date: 20190228
  Transmission Date: 20190418
  Serious: Yes (Other)
  Sender: FDA-Public Use
  Company Number: GB-TEVA-2019-GB-1017268

PATIENT
  Sex: Male

DRUGS (2)
  1. CISPLATIN. [Suspect]
     Active Substance: CISPLATIN
     Indication: NON-SMALL CELL LUNG CANCER
     Dosage: SCHEDULED TO RECEIVE CISPLATIN 20 MG/M2 WITH FRACTIONS 1-4 AND 16-19 OVER A PERIOD OF FOUR WEEKS.
     Route: 042
  2. VINORELBINE [Suspect]
     Active Substance: VINORELBINE\VINORELBINE TARTRATE
     Indication: NON-SMALL CELL LUNG CANCER
     Dosage: SCHEDULED TO RECEIVE VINORELBINE 15 MG/M2 ON THE DAY OF FRACTIONS 1, 6, 15 AND 20 OVER A PERIOD O...
     Route: 042

REACTIONS (1)
  - Oesophagitis [Unknown]
